FAERS Safety Report 13012993 (Version 1)
Quarter: 2016Q4

REPORT INFORMATION
  Report Type: Spontaneous
  Country: US (occurrence: US)
  Receive Date: 20161208
  Receipt Date: 20161208
  Transmission Date: 20170207
  Serious: Yes (Disabling)
  Sender: FDA-Public Use
  Company Number: None

PATIENT
  Age: 52 Year
  Sex: Female
  Weight: 58.5 kg

DRUGS (4)
  1. CIPRO [Suspect]
     Active Substance: CIPROFLOXACIN HYDROCHLORIDE
     Indication: CYSTITIS
     Route: 048
     Dates: start: 20140301, end: 20140301
  2. WHOLE FOOD NUTRITION [Concomitant]
  3. KIDNEY ENZYMES [Concomitant]
  4. GLANDULARS [Concomitant]

REACTIONS (4)
  - Nuchal rigidity [None]
  - Muscle spasms [None]
  - Pain [None]
  - Abasia [None]

NARRATIVE: CASE EVENT DATE: 20140301
